FAERS Safety Report 9266738 (Version 1)
Quarter: 2013Q2

REPORT INFORMATION
  Report Type: Spontaneous
  Country: SK (occurrence: SK)
  Receive Date: 20130502
  Receipt Date: 20130502
  Transmission Date: 20140414
  Serious: Yes (Hospitalization)
  Sender: FDA-Public Use
  Company Number: SK-PFIZER INC-2013136220

PATIENT
  Age: 81 Year
  Sex: Male

DRUGS (1)
  1. AMIODARONE HCL [Suspect]
     Dosage: UNK, DAILY
     Route: 065

REACTIONS (2)
  - Liver disorder [Recovered/Resolved]
  - Hyperthyroidism [Recovered/Resolved]
